FAERS Safety Report 5793368-5 (Version None)
Quarter: 2008Q2

REPORT INFORMATION
  Report Type: 
  Country: None (occurrence: None)
  Receive Date: 20080627
  Receipt Date: 20080623
  Transmission Date: 20081010
  Serious: Yes (Death)
  Sender: FDA-Public Use
  Company Number: B0526881A

PATIENT
  Sex: Male

DRUGS (3)
  1. ZINACEF [Suspect]
     Indication: DRUG USE FOR UNKNOWN INDICATION
     Route: 065
  2. TRITACE [Suspect]
     Indication: DRUG USE FOR UNKNOWN INDICATION
  3. CONCURRENT MEDICATIONS [Concomitant]

REACTIONS (3)
  - BRAIN HYPOXIA [None]
  - DRUG HYPERSENSITIVITY [None]
  - HYPERSENSITIVITY [None]
